FAERS Safety Report 25019013 (Version 2)
Quarter: 2025Q1

REPORT INFORMATION
  Report Type: Spontaneous
  Country: US (occurrence: US)
  Receive Date: 20250227
  Receipt Date: 20250313
  Transmission Date: 20250408
  Serious: No
  Sender: PFIZER
  Company Number: US-PFIZER INC-PV202400050310

PATIENT
  Age: 6 Year
  Sex: Male
  Weight: 15.42 kg

DRUGS (3)
  1. GENOTROPIN [Suspect]
     Active Substance: SOMATROPIN
     Indication: Hypopituitarism
  2. GENOTROPIN [Suspect]
     Active Substance: SOMATROPIN
     Indication: Growth hormone deficiency
     Dates: start: 202405
  3. GENOTROPIN [Suspect]
     Active Substance: SOMATROPIN
     Indication: Underweight

REACTIONS (5)
  - Ear infection [Recovered/Resolved]
  - Device issue [Unknown]
  - Device use error [Unknown]
  - Drug dose omission by device [Unknown]
  - Incorrect dose administered by device [Unknown]

NARRATIVE: CASE EVENT DATE: 20250211
